FAERS Safety Report 23993012 (Version 1)
Quarter: 2024Q2

REPORT INFORMATION
  Report Type: Spontaneous
  Country: US (occurrence: US)
  Receive Date: 20240620
  Receipt Date: 20240620
  Transmission Date: 20240715
  Serious: No
  Sender: FDA-Public Use
  Company Number: US-GSKCCFUS-Case-02029872_AE-112571

PATIENT
  Sex: Female

DRUGS (1)
  1. BENLYSTA [Suspect]
     Active Substance: BELIMUMAB
     Indication: Systemic lupus erythematosus
     Dosage: 100 MG/ML, WE
     Route: 058

REACTIONS (3)
  - Injection site haemorrhage [Unknown]
  - Wrong technique in device usage process [Unknown]
  - Product complaint [Unknown]
